FAERS Safety Report 13746512 (Version 1)
Quarter: 2017Q3

REPORT INFORMATION
  Report Type: Spontaneous
  Country: BR (occurrence: BR)
  Receive Date: 20170712
  Receipt Date: 20170712
  Transmission Date: 20171127
  Serious: Yes (Death, Other)
  Sender: FDA-Public Use
  Company Number: BR-PFIZER INC-2017302545

PATIENT

DRUGS (1)
  1. TOFACITINIB CITRATE [Suspect]
     Active Substance: TOFACITINIB CITRATE
     Indication: RHEUMATOID ARTHRITIS
     Dosage: UNK

REACTIONS (7)
  - Pulmonary sepsis [Unknown]
  - Headache [Unknown]
  - Brain abscess [Unknown]
  - Confusional state [Unknown]
  - Pyrexia [Unknown]
  - Death [Fatal]
  - CNS ventriculitis [Unknown]
